FAERS Safety Report 7131084-8 (Version None)
Quarter: 2010Q4

REPORT INFORMATION
  Report Type: 
  Country: None (occurrence: None)
  Receive Date: 20101201
  Receipt Date: 20101119
  Transmission Date: 20110411
  Serious: Yes (Other)
  Sender: FDA-Public Use
  Company Number: US-PFIZER INC-2010153648

PATIENT
  Sex: Female
  Weight: 81.633 kg

DRUGS (4)
  1. PRISTIQ [Suspect]
     Indication: DEPRESSION
     Dosage: UNK
     Route: 048
     Dates: start: 20080101, end: 20090101
  2. SIMVASTATIN [Concomitant]
     Dosage: 40 MG, UNK
  3. WELCHOL [Concomitant]
     Dosage: 625 MG, UNK
  4. SYNTHROID [Concomitant]
     Indication: HYPOTHYROIDISM
     Dosage: 0.112 MG, UNK

REACTIONS (1)
  - POST PROCEDURAL COMPLICATION [None]
